FAERS Safety Report 11451351 (Version 1)
Quarter: 2015Q3

REPORT INFORMATION
  Report Type: Spontaneous
  Country: US (occurrence: US)
  Receive Date: 20150903
  Receipt Date: 20150903
  Transmission Date: 20151125
  Serious: No
  Sender: FDA-Public Use
  Company Number: US-ROCHE-1067378

PATIENT

DRUGS (4)
  1. RIBAVIRIN. [Concomitant]
     Active Substance: RIBAVIRIN
     Route: 065
     Dates: end: 20120427
  2. BOCEPREVIR [Concomitant]
     Active Substance: BOCEPREVIR
     Route: 065
     Dates: end: 20120427
  3. INCIVEK [Concomitant]
     Active Substance: TELAPREVIR
     Route: 065
     Dates: end: 20120427
  4. PEGASYS [Suspect]
     Active Substance: PEGINTERFERON ALFA-2A
     Indication: PRODUCT USED FOR UNKNOWN INDICATION
     Route: 065
     Dates: end: 20120427

REACTIONS (2)
  - Depression [Unknown]
  - Rash generalised [Not Recovered/Not Resolved]
